FAERS Safety Report 9535362 (Version 4)
Quarter: 2014Q1

REPORT INFORMATION
  Report Type: Spontaneous
  Country: US (occurrence: US)
  Receive Date: 20130918
  Receipt Date: 20140218
  Transmission Date: 20141002
  Serious: Yes (Hospitalization, Other)
  Sender: FDA-Public Use
  Company Number: US-MERCK-1309USA005419

PATIENT
  Sex: Female
  Weight: 56.69 kg

DRUGS (7)
  1. FOSAMAX [Suspect]
     Indication: OSTEOPENIA
     Dosage: 70 MG, UNK
     Route: 048
  2. FOSAMAX [Suspect]
     Dosage: 10 MG, UNK
     Route: 048
  3. FOSAMAX PLUS D [Suspect]
     Indication: OSTEOPENIA
     Dosage: 70 MG, UNK
     Route: 048
     Dates: start: 20060329, end: 20080228
  4. ALENDRONATE SODIUM [Suspect]
     Indication: OSTEOPENIA
     Dosage: 70 MG, UNK
     Dates: start: 20080222, end: 20110316
  5. CALCIUM (UNSPECIFIED) (+) VITAMIN D (UNSPECIFIED) [Concomitant]
     Dosage: 1 DF, QD
     Dates: start: 1990
  6. VITAMINS (UNSPECIFIED) [Concomitant]
     Dosage: 1 DF, QD
     Dates: start: 1990
  7. SYNTHROID [Concomitant]
     Indication: HYPOTHYROIDISM
     Dosage: 0.075 MG, QD
     Dates: start: 20000508

REACTIONS (55)
  - Femur fracture [Unknown]
  - Open reduction of fracture [Unknown]
  - Bone graft [Unknown]
  - Intramedullary rod insertion [Recovered/Resolved]
  - Bone graft [Recovered/Resolved]
  - Hip arthroplasty [Unknown]
  - Shoulder operation [Unknown]
  - Haemorrhage [Unknown]
  - Osteoarthritis [Unknown]
  - Confusional state [Unknown]
  - Device failure [Unknown]
  - Cholecystectomy [Unknown]
  - Cardiac operation [Unknown]
  - Myocardial infarction [Unknown]
  - Shoulder operation [Unknown]
  - Impaired healing [Unknown]
  - Low turnover osteopathy [Unknown]
  - Adverse event [Unknown]
  - Hypertension [Unknown]
  - Hyperlipidaemia [Unknown]
  - Depression [Unknown]
  - Anxiety [Unknown]
  - Sleep disorder [Unknown]
  - Motion sickness [Unknown]
  - Chest pain [Unknown]
  - Hypertonic bladder [Unknown]
  - Infection [Unknown]
  - Restless legs syndrome [Unknown]
  - Bacterial infection [Unknown]
  - Insomnia [Unknown]
  - Iron deficiency [Unknown]
  - Laryngitis [Recovering/Resolving]
  - Dyspnoea exertional [Unknown]
  - Device occlusion [Unknown]
  - Dry mouth [Unknown]
  - Nephrolithiasis [Recovered/Resolved]
  - Anaemia [Unknown]
  - Urinary retention [Unknown]
  - Lumbar spinal stenosis [Unknown]
  - Spinal osteoarthritis [Unknown]
  - Coronary artery disease [Unknown]
  - Osteoarthritis [Unknown]
  - Fracture delayed union [Unknown]
  - Pain [Unknown]
  - Contusion [Unknown]
  - Diarrhoea [Unknown]
  - Muscle spasms [Unknown]
  - Vomiting [Unknown]
  - Myalgia [Unknown]
  - Dizziness [Unknown]
  - Nausea [Unknown]
  - Dysgeusia [Unknown]
  - Arthralgia [Unknown]
  - Back pain [Not Recovered/Not Resolved]
  - Arthralgia [Not Recovered/Not Resolved]
